FAERS Safety Report 18455909 (Version 1)
Quarter: 2020Q4

REPORT INFORMATION
  Report Type: Other
  Country: CA (occurrence: CA)
  Receive Date: 20201102
  Receipt Date: 20201102
  Transmission Date: 20210114
  Serious: Yes (Death, Hospitalization)
  Sender: FDA-Public Use
  Company Number: CA-CELLTRION INC.-2020CA030295

PATIENT

DRUGS (13)
  1. SYNTHROID [Concomitant]
     Active Substance: LEVOTHYROXINE SODIUM
     Route: 065
  2. CANDESARTAN. [Concomitant]
     Active Substance: CANDESARTAN
     Dosage: 8 MILLIGRAM
     Route: 065
  3. ACETAMINOPHEN;CAFFEINE;DIHYDROCODEINE [Concomitant]
     Active Substance: ACETAMINOPHEN\CAFFEINE\DIHYDROCODEINE BITARTRATE
     Indication: PREMEDICATION
     Route: 065
  4. RANITIDINE. [Concomitant]
     Active Substance: RANITIDINE
     Route: 065
  5. RITUXIMAB (UNKNOWN) [Suspect]
     Active Substance: RITUXIMAB
     Indication: RHEUMATOID ARTHRITIS
     Dosage: 1000 MILLIGRAM, 1 EVERY 6 MONTHS
     Route: 042
  6. HUMIRA [Concomitant]
     Active Substance: ADALIMUMAB
     Dosage: 1 EVERY 2 WEEKS
     Route: 058
  7. RITUXIMAB (UNKNOWN) [Suspect]
     Active Substance: RITUXIMAB
     Dosage: 1000 MILLIGRAM
     Route: 042
  8. PREDNISONE. [Concomitant]
     Active Substance: PREDNISONE
     Route: 065
  9. SOLU-MEDROL [Concomitant]
     Active Substance: METHYLPREDNISOLONE SODIUM SUCCINATE
     Indication: PREMEDICATION
     Dosage: 100 MILLIGRAM
     Route: 042
  10. TYLENOL [Concomitant]
     Active Substance: ACETAMINOPHEN
     Indication: PREMEDICATION
     Dosage: 625 MILLIGRAM
     Route: 048
  11. BENADRYL [Suspect]
     Active Substance: DIPHENHYDRAMINE HYDROCHLORIDE
     Indication: PREMEDICATION
     Dosage: 50 MILLIGRAM
     Route: 048
  12. TYLENOL 8 HR ARTHRITIS PAIN [Concomitant]
     Active Substance: ACETAMINOPHEN
     Route: 065
  13. AMLODIPINE [Concomitant]
     Active Substance: AMLODIPINE BESYLATE
     Dosage: 10 MILLIGRAM
     Route: 065

REACTIONS (11)
  - Immunodeficiency [Fatal]
  - Plasma cell myeloma [Fatal]
  - Limb mass [Fatal]
  - Bacteraemia [Fatal]
  - Blood pressure increased [Fatal]
  - Decreased appetite [Fatal]
  - Off label use [Unknown]
  - Diarrhoea [Fatal]
  - Dizziness [Fatal]
  - Asthenia [Fatal]
  - Somnolence [Fatal]
